FAERS Safety Report 7414681-1 (Version None)
Quarter: 2011Q2

REPORT INFORMATION
  Report Type: 
  Country: None (occurrence: None)
  Receive Date: 20110414
  Receipt Date: 20100116
  Transmission Date: 20111010
  Serious: Yes (Death, Hospitalization, Other)
  Sender: FDA-Public Use
  Company Number: US-BAYER-201011154NA

PATIENT
  Age: 53 Year
  Sex: Male
  Weight: 90.703 kg

DRUGS (12)
  1. TRASYLOL [Suspect]
     Indication: CORONARY ARTERY BYPASS
     Dosage: 50 ML/HR
     Route: 042
     Dates: start: 20000828, end: 20000828
  2. VERSED [Concomitant]
     Dosage: UNK
     Dates: start: 20000828, end: 20000828
  3. PLATELETS [Concomitant]
     Dosage: 10 U, UNK
     Route: 042
     Dates: start: 20000828, end: 20000828
  4. LASIX [Concomitant]
     Route: 048
  5. ZAROXOLYN [Concomitant]
     Route: 048
  6. RED BLOOD CELLS [Concomitant]
     Dosage: 1 U, UNK
     Route: 042
     Dates: start: 20000828, end: 20000828
  7. TRASYLOL [Suspect]
     Indication: HEART VALVE REPLACEMENT
  8. BUMEX [Concomitant]
     Dosage: UNK
     Route: 042
     Dates: start: 20000721
  9. PLASMA [Concomitant]
     Dosage: 2 U, UNK
     Route: 042
     Dates: start: 20000828, end: 20000828
  10. LASIX [Concomitant]
     Route: 042
  11. CEFAZOLIN [Concomitant]
     Dosage: 1 G, UNK
     Dates: start: 20000828, end: 20000828
  12. ALDACTONE [Concomitant]
     Dosage: UNK
     Route: 048
     Dates: start: 20000725

REACTIONS (15)
  - CARDIAC DISORDER [None]
  - MYOCARDIAL INFARCTION [None]
  - RENAL INJURY [None]
  - FEAR [None]
  - CEREBROVASCULAR ACCIDENT [None]
  - ORGAN FAILURE [None]
  - RENAL IMPAIRMENT [None]
  - ANXIETY [None]
  - INJURY [None]
  - DEATH [None]
  - ANHEDONIA [None]
  - RENAL FAILURE [None]
  - UNEVALUABLE EVENT [None]
  - PAIN [None]
  - DEPRESSION [None]
